FAERS Safety Report 25131016 (Version 1)
Quarter: 2025Q1

REPORT INFORMATION
  Report Type: Report from Study
  Country: CA (occurrence: CA)
  Receive Date: 20250327
  Receipt Date: 20250327
  Transmission Date: 20250409
  Serious: Yes (Other)
  Sender: TAKEDA
  Company Number: CA-TAKEDA-2025TUS031324

PATIENT
  Sex: Female

DRUGS (8)
  1. VEDOLIZUMAB [Suspect]
     Active Substance: VEDOLIZUMAB
     Indication: Colitis ulcerative
  2. MESALAMINE [Concomitant]
     Active Substance: MESALAMINE
  3. SUMATRIPTAN AND NAPROXEN SODIUM [Concomitant]
     Active Substance: NAPROXEN SODIUM\SUMATRIPTAN SUCCINATE
  4. UBROGEPANT [Concomitant]
     Active Substance: UBROGEPANT
  5. CAMBIA [Concomitant]
     Active Substance: DICLOFENAC POTASSIUM
  6. TOLFENAMIC ACID [Concomitant]
     Active Substance: TOLFENAMIC ACID
  7. CALCIUM [Concomitant]
     Active Substance: CALCIUM
  8. FERROUS FUMARATE [Concomitant]
     Active Substance: FERROUS FUMARATE

REACTIONS (1)
  - Colitis ulcerative [Not Recovered/Not Resolved]
